FAERS Safety Report 24383731 (Version 1)
Quarter: 2024Q4

REPORT INFORMATION
  Report Type: Spontaneous
  Country: CN (occurrence: CN)
  Receive Date: 20241001
  Receipt Date: 20241001
  Transmission Date: 20250114
  Serious: Yes (Hospitalization)
  Sender: BEIGENE
  Company Number: CN-BEIGENE-BGN-2024-015010

PATIENT

DRUGS (2)
  1. TISLELIZUMAB [Suspect]
     Active Substance: TISLELIZUMAB
     Indication: Small cell lung cancer
     Dosage: 200 MILLIGRAM
     Route: 041
     Dates: start: 20240815
  2. BEVACIZUMAB [Suspect]
     Active Substance: BEVACIZUMAB
     Indication: Small cell lung cancer
     Dosage: 500 MILLIGRAM
     Route: 041
     Dates: start: 20240815

REACTIONS (6)
  - Vomiting [Recovering/Resolving]
  - Hypoaesthesia [Recovering/Resolving]
  - Cough [Recovering/Resolving]
  - Spinal osteoarthritis [Unknown]
  - Insomnia [Unknown]
  - Chronic gastritis [Unknown]

NARRATIVE: CASE EVENT DATE: 20240901
